FAERS Safety Report 7854377-5 (Version None)
Quarter: 2011Q4

REPORT INFORMATION
  Report Type: 
  Country: None (occurrence: None)
  Receive Date: 20111026
  Receipt Date: 20110908
  Transmission Date: 20120403
  Serious: Yes (Other)
  Sender: FDA-Public Use
  Company Number: ES-CEPHALON-2011005512

PATIENT
  Age: 44 Year
  Sex: Female

DRUGS (7)
  1. RABEPRAZOLE SODIUM [Concomitant]
  2. KETAZOLAM [Concomitant]
  3. VENLAFAXINE HCL [Concomitant]
  4. VENLAFAXINE [Concomitant]
  5. SEDOTIME [Concomitant]
  6. ACTIQ [Suspect]
     Indication: BACK PAIN
     Route: 002
     Dates: start: 20070531
  7. ALPRAZOLAM [Concomitant]

REACTIONS (2)
  - DRUG ABUSE [None]
  - DRUG DEPENDENCE [None]
